FAERS Safety Report 7476595-0 (Version None)
Quarter: 2011Q2

REPORT INFORMATION
  Report Type: 
  Country: None (occurrence: None)
  Receive Date: 20110512
  Receipt Date: 20110503
  Transmission Date: 20111010
  Serious: Yes (Other)
  Sender: FDA-Public Use
  Company Number: CN-ASTRAZENECA-2011SE26146

PATIENT
  Age: 81 Year
  Sex: Male

DRUGS (3)
  1. IRESSA [Suspect]
     Route: 048
  2. IRESSA [Suspect]
     Route: 048
  3. IRESSA [Suspect]
     Indication: LUNG CARCINOMA CELL TYPE UNSPECIFIED STAGE II
     Route: 048

REACTIONS (8)
  - DERMATITIS ALLERGIC [None]
  - SKIN NECROSIS [None]
  - DRUG ERUPTION [None]
  - SKIN EXFOLIATION [None]
  - SKIN DISCOLOURATION [None]
  - PRURITUS [None]
  - OEDEMA [None]
  - RASH RUBELLIFORM [None]
